FAERS Safety Report 4663552-2 (Version None)
Quarter: 2005Q2

REPORT INFORMATION
  Report Type: 
  Country: None (occurrence: None)
  Receive Date: 20050517
  Receipt Date: 20050504
  Transmission Date: 20051028
  Serious: Yes (Other)
  Sender: FDA-Public Use
  Company Number: CH-GLAXOSMITHKLINE-B0381097A

PATIENT
  Age: 44 Year
  Sex: Female

DRUGS (2)
  1. DEROXAT [Suspect]
     Dosage: 20MG PER DAY
     Dates: start: 20050101, end: 20050320
  2. IMOVANE [Suspect]
     Dosage: 7.5MG PER DAY
     Route: 048
     Dates: start: 20050101, end: 20050320

REACTIONS (2)
  - DRUG EXPOSURE DURING PREGNANCY [None]
  - PREGNANCY [None]
